FAERS Safety Report 5019235-2 (Version None)
Quarter: 2006Q2

REPORT INFORMATION
  Report Type: 
  Country: None (occurrence: None)
  Receive Date: 20060606
  Receipt Date: 20060530
  Transmission Date: 20061013
  Serious: Yes (Other)
  Sender: FDA-Public Use
  Company Number: BR-JNJFOC-20060600839

PATIENT
  Age: 90 Year
  Sex: Female
  Weight: 40 kg

DRUGS (7)
  1. ACETAMINOPHEN W/ CODEINE [Suspect]
     Indication: PAIN IN EXTREMITY
     Route: 048
  2. ARADOIS [Concomitant]
     Indication: HYPERTENSION
  3. CEBRALAT [Concomitant]
     Indication: DILATATION ATRIAL
  4. SOMALGIN CARDIO [Concomitant]
  5. SOMALGIN CARDIO [Concomitant]
     Indication: PLATELET AGGREGATION INHIBITION
  6. RANITIDINE [Concomitant]
     Indication: GASTRITIS
  7. PRAVASTATIN [Concomitant]
     Indication: HYPERLIPIDAEMIA

REACTIONS (3)
  - DIZZINESS [None]
  - NAUSEA [None]
  - SYNCOPE [None]
